FAERS Safety Report 21886725 (Version 1)
Quarter: 2023Q1

REPORT INFORMATION
  Report Type: Spontaneous
  Country: US (occurrence: None)
  Receive Date: 20230119
  Receipt Date: 20230119
  Transmission Date: 20230418
  Serious: Yes (Other)
  Sender: FDA-Public Use
  Company Number: None

PATIENT
  Age: 75 Year
  Sex: Female

DRUGS (1)
  1. PRALUENT [Suspect]
     Active Substance: ALIROCUMAB
     Indication: Blood cholesterol increased
     Dates: start: 20221109, end: 20230118

REACTIONS (4)
  - Urinary incontinence [None]
  - Fatigue [None]
  - Bone pain [None]
  - Gait inability [None]

NARRATIVE: CASE EVENT DATE: 20230118
